FAERS Safety Report 9618738 (Version 2)
Quarter: 2013Q4

REPORT INFORMATION
  Report Type: Report from Study
  Country: US (occurrence: US)
  Receive Date: 20131014
  Receipt Date: 20131014
  Transmission Date: 20140711
  Serious: Yes (Other)
  Sender: FDA-Public Use
  Company Number: US-JNJFOC-20130318241

PATIENT
  Age: 48 Year
  Sex: Female
  Weight: 97.07 kg

DRUGS (25)
  1. REMICADE [Suspect]
     Indication: SJOGREN^S SYNDROME
     Dosage: ALSO REPORTED AS FREQUENCY 4 OR 5 WEEKS
     Route: 042
     Dates: start: 2012
  2. REMICADE [Suspect]
     Indication: SJOGREN^S SYNDROME
     Dosage: START DATE A YEAR OR TWO AGO
     Route: 042
     Dates: start: 2011, end: 201211
  3. REMICADE [Suspect]
     Indication: RHEUMATOID ARTHRITIS
     Dosage: ALSO REPORTED AS FREQUENCY 4 OR 5 WEEKS
     Route: 042
     Dates: start: 2012
  4. REMICADE [Suspect]
     Indication: RHEUMATOID ARTHRITIS
     Dosage: START DATE A YEAR OR TWO AGO
     Route: 042
     Dates: start: 2011, end: 201211
  5. REMICADE [Suspect]
     Indication: PSORIATIC ARTHROPATHY
     Dosage: ALSO REPORTED AS FREQUENCY 4 OR 5 WEEKS
     Route: 042
     Dates: start: 2012
  6. REMICADE [Suspect]
     Indication: PSORIATIC ARTHROPATHY
     Dosage: START DATE A YEAR OR TWO AGO
     Route: 042
     Dates: start: 2011, end: 201211
  7. EXFORGE [Concomitant]
     Indication: HYPERTENSION
     Dosage: 10/320 MG/TABLET
     Route: 048
     Dates: start: 2011
  8. SAVELLA [Concomitant]
     Indication: PAIN
     Route: 048
     Dates: start: 2011
  9. HYDROXYCHLOR [Concomitant]
     Indication: ARTHRITIS
     Dosage: 1.5 IN THE MORNING
     Route: 065
     Dates: start: 2011
  10. LEVOXYL [Concomitant]
     Indication: THYROID DISORDER
     Route: 048
     Dates: start: 2011
  11. BENZONATATE [Concomitant]
     Indication: COUGH
     Route: 048
  12. BYSTOLIC [Concomitant]
     Indication: BLOOD PRESSURE
     Dosage: AT SLEEP
     Route: 048
  13. PSEUDOEPHEDRINE [Concomitant]
     Indication: SINUS DISORDER
     Dosage: AT NIGHT
     Route: 048
  14. SULFASALAZINE [Concomitant]
     Indication: COLITIS
     Route: 048
  15. GABAPENTIN [Concomitant]
     Indication: MIGRAINE
     Route: 048
  16. HYDROCHLOROTHIAZIDE [Concomitant]
     Indication: FLUID RETENTION
     Route: 048
     Dates: start: 2012
  17. EVOXAC [Concomitant]
     Indication: SJOGREN^S SYNDROME
     Dosage: UP TO
     Route: 048
     Dates: start: 2010
  18. PANTOPRAZOLE [Concomitant]
     Indication: DYSPEPSIA
     Route: 048
     Dates: start: 2012
  19. LEXAPRO [Concomitant]
     Indication: DEPRESSION
     Route: 048
     Dates: start: 201211
  20. PREDNISONE [Concomitant]
     Indication: ARTHRITIS
     Route: 048
  21. ESTRADIOL [Concomitant]
     Indication: HORMONE REPLACEMENT THERAPY
     Route: 048
     Dates: start: 2003
  22. LORATADINE [Concomitant]
     Indication: HYPERSENSITIVITY
     Route: 048
  23. PHENTERMINE [Concomitant]
     Indication: MIGRAINE
     Route: 048
  24. UROCIT-K [Concomitant]
     Route: 048
     Dates: start: 2013
  25. VESICARE [Concomitant]
     Indication: INCONTINENCE
     Route: 048
     Dates: start: 2013

REACTIONS (11)
  - Migraine [Not Recovered/Not Resolved]
  - Arthralgia [Not Recovered/Not Resolved]
  - Nephrolithiasis [Recovered/Resolved]
  - Gastroenteritis viral [Recovering/Resolving]
  - Vomiting [Not Recovered/Not Resolved]
  - Diarrhoea [Not Recovered/Not Resolved]
  - Therapeutic response decreased [Not Recovered/Not Resolved]
  - Respiratory disorder [Not Recovered/Not Resolved]
  - Bronchitis [Not Recovered/Not Resolved]
  - Pallor [Recovered/Resolved]
  - Eating disorder [Recovered/Resolved]
